FAERS Safety Report 20308624 (Version 1)
Quarter: 2022Q1

REPORT INFORMATION
  Report Type: Spontaneous
  Country: JP (occurrence: JP)
  Receive Date: 20220107
  Receipt Date: 20220107
  Transmission Date: 20220423
  Serious: Yes (Other)
  Sender: FDA-Public Use
  Company Number: JP-PFIZER INC-202101355308

PATIENT
  Age: 61 Year
  Sex: Male

DRUGS (2)
  1. TRIAZOLAM [Suspect]
     Active Substance: TRIAZOLAM
     Dosage: 20 DF, SINGLE
  2. KEROSENE [Suspect]
     Active Substance: KEROSENE
     Dosage: 200 ML, SINGLE

REACTIONS (2)
  - Intentional overdose [Unknown]
  - Suicide attempt [Unknown]
